FAERS Safety Report 9417176 (Version 1)
Quarter: 2013Q3

REPORT INFORMATION
  Report Type: Spontaneous
  Country: US (occurrence: US)
  Receive Date: 20130724
  Receipt Date: 20130724
  Transmission Date: 20140515
  Serious: No
  Sender: FDA-Public Use
  Company Number: US-PFIZER INC-2013215913

PATIENT
  Age: 78 Year
  Sex: Male
  Weight: 81.63 kg

DRUGS (1)
  1. TIKOSYN [Suspect]
     Indication: ATRIAL FIBRILLATION
     Dosage: 250 MG, 2X/DAY
     Dates: start: 201307

REACTIONS (3)
  - Eye oedema [Recovered/Resolved]
  - Dry eye [Recovered/Resolved]
  - Eye irritation [Not Recovered/Not Resolved]
